FAERS Safety Report 20021326 (Version 2)
Quarter: 2022Q1

REPORT INFORMATION
  Report Type: Spontaneous
  Country: TR (occurrence: TR)
  Receive Date: 20211101
  Receipt Date: 20220209
  Transmission Date: 20220423
  Serious: Yes (Disabling, Other)
  Sender: FDA-Public Use
  Company Number: TR-BIOMARINAP-TR-2021-139261

PATIENT
  Age: 18 Year
  Sex: Female
  Weight: 16 kg

DRUGS (1)
  1. NAGLAZYME [Suspect]
     Active Substance: GALSULFASE
     Indication: Mucopolysaccharidosis VI
     Dosage: 1 MILLIGRAM/KILOGRAM, QW
     Route: 065

REACTIONS (4)
  - Deafness [Recovering/Resolving]
  - Depression [Recovering/Resolving]
  - Cardiac valve disease [Unknown]
  - Corneal opacity [Unknown]
